FAERS Safety Report 8502103-9 (Version None)
Quarter: 2012Q3

REPORT INFORMATION
  Report Type: 
  Country: None (occurrence: None)
  Receive Date: 20120711
  Receipt Date: 20120625
  Transmission Date: 20120928
  Serious: Yes (Other)
  Sender: FDA-Public Use
  Company Number: CA-JNJFOC-20120613040

PATIENT
  Sex: Female
  Weight: 114 kg

DRUGS (16)
  1. MIRTAZAPINE [Concomitant]
     Route: 065
  2. VITAMIN D [Concomitant]
     Route: 065
  3. DULOXETIME HYDROCHLORIDE [Concomitant]
     Route: 065
  4. CALCIUM CARBONATE [Concomitant]
     Route: 065
  5. ALFACALCIDOL [Concomitant]
     Route: 065
  6. ALL OTHER THERAPEUTICS [Concomitant]
     Route: 065
  7. CYCLOBENZAPRINE [Concomitant]
     Route: 065
  8. HYOSCINE HBR HYT [Concomitant]
     Route: 065
  9. PREGABALIN [Concomitant]
     Route: 065
  10. VITAMIN B-12 [Concomitant]
     Route: 065
  11. TYLENOL W/ CODEINE NO. 3 [Concomitant]
     Route: 065
  12. CLONAZEPAM [Concomitant]
     Route: 065
  13. XENICAL [Concomitant]
     Route: 065
  14. REMICADE [Suspect]
     Indication: CROHN'S DISEASE
     Route: 042
     Dates: start: 20040801
  15. IMURAN [Concomitant]
     Route: 065
  16. OMEPRAZOLE [Concomitant]
     Route: 065

REACTIONS (2)
  - PNEUMONIA [None]
  - ESCHERICHIA INFECTION [None]
